FAERS Safety Report 4971137-3 (Version None)
Quarter: 2006Q1

REPORT INFORMATION
  Report Type: 
  Country: None (occurrence: None)
  Receive Date: 20060223
  Receipt Date: 20050918
  Transmission Date: 20060701
  Serious: Yes (Disabling)
  Sender: FDA-Public Use
  Company Number: HQWYE518419SEP05

PATIENT
  Sex: Male

DRUGS (1)
  1. EFFEXOR [Suspect]
     Dosage: 325 MG 1X PER 1 DAY
     Dates: start: 20040101, end: 20050101

REACTIONS (5)
  - DRUG WITHDRAWAL SYNDROME [None]
  - FALL [None]
  - PARAESTHESIA [None]
  - PSYCHOTIC DISORDER [None]
  - TREMOR [None]
